FAERS Safety Report 23897520 (Version 2)
Quarter: 2024Q2

REPORT INFORMATION
  Report Type: Report from Study
  Country: FR (occurrence: FR)
  Receive Date: 20240524
  Receipt Date: 20240525
  Transmission Date: 20240715
  Serious: Yes (Death, Life-Threatening)
  Sender: FDA-Public Use
  Company Number: FR-ABBVIE-5772378

PATIENT
  Age: 73 Year
  Sex: Male

DRUGS (6)
  1. CARBIDOPA\LEVODOPA [Suspect]
     Active Substance: CARBIDOPA\LEVODOPA
     Indication: Parkinson^s disease
     Route: 050
     Dates: start: 20220428
  2. CARBIDOPA\LEVODOPA [Suspect]
     Active Substance: CARBIDOPA\LEVODOPA
  3. AUGMENTIN [Concomitant]
     Active Substance: AMOXICILLIN\CLAVULANATE POTASSIUM
     Indication: Infection
     Dosage: TIME INTERVAL: 0.33333333 DAYS
     Route: 042
     Dates: start: 20240522
  4. OXYGEN [Concomitant]
     Active Substance: OXYGEN
     Indication: Infection
     Route: 065
     Dates: start: 20240523
  5. OXYGEN [Concomitant]
     Active Substance: OXYGEN
     Indication: Infection
     Route: 065
     Dates: start: 20240522, end: 20240522
  6. OXYGEN [Concomitant]
     Active Substance: OXYGEN
     Indication: Infection
     Route: 065
     Dates: start: 20240522, end: 20240522

REACTIONS (6)
  - Death [Fatal]
  - Infection [Not Recovered/Not Resolved]
  - Anuria [Unknown]
  - Dyspnoea [Unknown]
  - Pneumonia aspiration [Unknown]
  - Oedema peripheral [Unknown]

NARRATIVE: CASE EVENT DATE: 20240522
